FAERS Safety Report 13500670 (Version 2)
Quarter: 2017Q3

REPORT INFORMATION
  Report Type: Report from Study
  Country: US (occurrence: US)
  Receive Date: 20170501
  Receipt Date: 20170831
  Transmission Date: 20171127
  Serious: Yes (Hospitalization)
  Sender: FDA-Public Use
  Company Number: US-PURDUE PHARMA-USA-2017-0138480

PATIENT
  Age: 73 Year
  Sex: Female

DRUGS (1)
  1. OXYCODONE HYDROCHLORIDE. [Suspect]
     Active Substance: OXYCODONE HYDROCHLORIDE
     Indication: SCOLIOSIS
     Dosage: 80 MG, BID
     Route: 048
     Dates: start: 2016, end: 201704

REACTIONS (4)
  - Inadequate analgesia [Recovered/Resolved]
  - Fall [Recovered/Resolved]
  - Malaise [Unknown]
  - Femur fracture [Recovered/Resolved]

NARRATIVE: CASE EVENT DATE: 201703
